FAERS Safety Report 25373434 (Version 3)
Quarter: 2025Q3

REPORT INFORMATION
  Report Type: Spontaneous
  Country: US (occurrence: US)
  Receive Date: 20250529
  Receipt Date: 20250908
  Transmission Date: 20251020
  Serious: Yes (Other)
  Sender: BAYER HEALTHCARE PHARMACEUTICALS INC.
  Company Number: US-BAYER-2025A069511

PATIENT
  Age: 23 Year
  Sex: Male
  Weight: 86.168 kg

DRUGS (9)
  1. JIVI [Suspect]
     Active Substance: DAMOCTOCOG ALFA PEGOL
     Indication: Factor VIII deficiency
     Dosage: STRENGTH 2000;INFUSED 2000 U, BIW
     Route: 042
     Dates: start: 201207
  2. JIVI [Suspect]
     Active Substance: DAMOCTOCOG ALFA PEGOL
     Indication: Prophylaxis
     Dosage: STRENGTH 500:INFUSED 800 U, BIW
     Route: 042
     Dates: start: 201207
  3. JIVI [Suspect]
     Active Substance: DAMOCTOCOG ALFA PEGOL
     Indication: Factor VIII deficiency
     Dosage: INFUSED 2800 UNITS (2520-3080), BIW
  4. JIVI [Suspect]
     Active Substance: DAMOCTOCOG ALFA PEGOL
     Indication: Factor VIII deficiency
     Route: 042
     Dates: start: 202503
  5. JIVI [Suspect]
     Active Substance: DAMOCTOCOG ALFA PEGOL
     Indication: Factor VIII deficiency
     Route: 042
     Dates: start: 202503
  6. JIVI [Suspect]
     Active Substance: DAMOCTOCOG ALFA PEGOL
     Indication: Factor VIII deficiency
     Dosage: STRENGTH: 500/ INFUSE 2800 UNITS (2520-3080) SLOW IV PUSH TWICE WEEKLY
     Dates: start: 201207
  7. JIVI [Suspect]
     Active Substance: DAMOCTOCOG ALFA PEGOL
     Indication: Factor VIII deficiency
     Dosage: STRENGTH: 2000/ INFUSE 2800 UNITS (2520-3080) SLOW IV PUSH TWICE WEEKLY
     Dates: start: 201207
  8. JIVI [Suspect]
     Active Substance: DAMOCTOCOG ALFA PEGOL
     Indication: Factor VIII deficiency
  9. ADVATE [Concomitant]
     Active Substance: ANTIHEMOPHILIC FACTOR, HUMAN RECOMBINANT

REACTIONS (7)
  - Haemarthrosis [None]
  - Haemarthrosis [None]
  - Weight decreased [None]
  - Haemorrhage [None]
  - Joint injury [None]
  - Limb injury [None]
  - Haemarthrosis [None]

NARRATIVE: CASE EVENT DATE: 20250501
